FAERS Safety Report 5662269-5 (Version None)
Quarter: 2008Q1

REPORT INFORMATION
  Report Type: 
  Country: None (occurrence: None)
  Receive Date: 20080312
  Receipt Date: 20080303
  Transmission Date: 20080703
  Serious: Yes (Hospitalization, Other)
  Sender: FDA-Public Use
  Company Number: US-MERCK-0707USA00485

PATIENT
  Age: 67 Year
  Sex: Female

DRUGS (1)
  1. FOSAMAX [Suspect]
     Indication: OSTEOPOROSIS
     Route: 048
     Dates: end: 20070202

REACTIONS (22)
  - ANXIETY [None]
  - CELLULITIS [None]
  - CORONARY ARTERY DISEASE [None]
  - DENTAL CARIES [None]
  - DEPRESSION [None]
  - DIVERTICULUM [None]
  - FUNGAL INFECTION [None]
  - HYPERCHOLESTEROLAEMIA [None]
  - HYPERLIPIDAEMIA [None]
  - INTERVERTEBRAL DISC DEGENERATION [None]
  - JAW DISORDER [None]
  - OSTEONECROSIS [None]
  - OSTEOPENIA [None]
  - PAIN IN JAW [None]
  - PERIODONTAL DISEASE [None]
  - PYELONEPHRITIS [None]
  - RENAL CYST [None]
  - RIB FRACTURE [None]
  - SKIN CANCER [None]
  - SUPRAVENTRICULAR TACHYCARDIA [None]
  - TACHYCARDIA [None]
  - URINARY TRACT INFECTION [None]
